FAERS Safety Report 5977989-2 (Version None)
Quarter: 2008Q4

REPORT INFORMATION
  Report Type: 
  Country: None (occurrence: None)
  Receive Date: 20081203
  Receipt Date: 20081126
  Transmission Date: 20090506
  Serious: Yes (Death, Hospitalization)
  Sender: FDA-Public Use
  Company Number: BR-ABBOTT-08P-163-0478871-00

PATIENT
  Sex: Female
  Weight: 104 kg

DRUGS (8)
  1. KALETRA [Suspect]
     Indication: DRUG USE FOR UNKNOWN INDICATION
     Route: 048
     Dates: start: 20071017
  2. MARAVIROC [Suspect]
     Indication: HIV INFECTION
     Route: 048
     Dates: start: 20071017
  3. LAMIVUDINE [Suspect]
     Indication: DRUG USE FOR UNKNOWN INDICATION
     Route: 048
     Dates: start: 20071017
  4. STAVUDINE [Suspect]
     Indication: DRUG USE FOR UNKNOWN INDICATION
     Route: 048
     Dates: start: 20071017
  5. CAPTOPRIL [Concomitant]
     Indication: DRUG USE FOR UNKNOWN INDICATION
     Route: 048
     Dates: start: 20070601
  6. HYDROCHLOROTHIAZIDE [Concomitant]
     Indication: DRUG USE FOR UNKNOWN INDICATION
     Route: 048
     Dates: start: 20070601
  7. BACTRIM [Concomitant]
     Indication: DRUG USE FOR UNKNOWN INDICATION
     Route: 048
     Dates: start: 20070801
  8. FLUOXETINE [Concomitant]
     Indication: DRUG USE FOR UNKNOWN INDICATION
     Route: 048
     Dates: start: 20060101

REACTIONS (8)
  - CEREBELLAR ATAXIA [None]
  - DEHYDRATION [None]
  - DEPRESSED LEVEL OF CONSCIOUSNESS [None]
  - DYSTONIA [None]
  - GUILLAIN-BARRE SYNDROME [None]
  - METABOLIC ACIDOSIS [None]
  - NYSTAGMUS [None]
  - PANCREATITIS [None]
